FAERS Safety Report 6367809-9 (Version None)
Quarter: 2009Q3

REPORT INFORMATION
  Report Type: 
  Country: None (occurrence: None)
  Receive Date: 20090921
  Receipt Date: 20090821
  Transmission Date: 20100115
  Serious: No
  Sender: FDA-Public Use
  Company Number: US-BAYER-200913663BCC

PATIENT
  Age: 84 Year
  Sex: Female
  Weight: 68 kg

DRUGS (3)
  1. ALEVE (CAPLET) [Suspect]
     Indication: NECK PAIN
     Dosage: UNIT DOSE: 220 MG
     Route: 048
     Dates: start: 20090819, end: 20090819
  2. SYNTHROID [Concomitant]
     Route: 065
  3. AVAPRO [Concomitant]
     Route: 065

REACTIONS (1)
  - DIZZINESS [None]
